FAERS Safety Report 8088751-1 (Version None)
Quarter: 2012Q1

REPORT INFORMATION
  Report Type: 
  Country: None (occurrence: None)
  Receive Date: 20120128
  Receipt Date: 20110608
  Transmission Date: 20120608
  Serious: No
  Sender: FDA-Public Use
  Company Number: US-ABBOTT-11P-163-0731063-00

PATIENT
  Age: 27 Year
  Sex: Female

DRUGS (4)
  1. HUMIRA [Suspect]
     Indication: COLITIS ULCERATIVE
     Dates: start: 20110201
  2. LIALDA [Concomitant]
     Indication: COLITIS ULCERATIVE
  3. CANACE [Concomitant]
     Indication: PRODUCT USED FOR UNKNOWN INDICATION
  4. UNKNOWN SUPPOSITORY MEDICATION [Concomitant]
     Indication: COLITIS ULCERATIVE
     Route: 054

REACTIONS (1)
  - DRUG EFFECT DECREASED [None]
